FAERS Safety Report 15170894 (Version 2)
Quarter: 2023Q2

REPORT INFORMATION
  Report Type: Spontaneous
  Country: US (occurrence: US)
  Receive Date: 20180720
  Receipt Date: 20230415
  Transmission Date: 20230721
  Serious: Yes (Hospitalization, Other)
  Sender: FDA-Public Use
  Company Number: US-JNJFOC-20180722958

PATIENT
  Age: 61 Year
  Sex: Male

DRUGS (2)
  1. INVOKANA [Suspect]
     Active Substance: CANAGLIFLOZIN
     Indication: Product used for unknown indication
     Route: 048
     Dates: end: 201701
  2. INVOKANA [Suspect]
     Active Substance: CANAGLIFLOZIN
     Dosage: //2017
     Route: 048

REACTIONS (5)
  - Gangrene [Unknown]
  - Osteomyelitis acute [Unknown]
  - Peripheral arterial occlusive disease [Unknown]
  - Toe amputation [Unknown]
  - Wound dehiscence [Unknown]

NARRATIVE: CASE EVENT DATE: 20161201
